FAERS Safety Report 6166780-2 (Version None)
Quarter: 2009Q2

REPORT INFORMATION
  Report Type: 
  Country: None (occurrence: None)
  Receive Date: 20090424
  Receipt Date: 20090417
  Transmission Date: 20091009
  Serious: Yes (Other)
  Sender: FDA-Public Use
  Company Number: B0570288A

PATIENT
  Sex: Female

DRUGS (3)
  1. NICORETTE [Suspect]
     Indication: SMOKING CESSATION THERAPY
     Route: 062
     Dates: start: 20090102, end: 20090123
  2. ASCORBIC ACID [Suspect]
     Indication: VITAMIN SUPPLEMENTATION
     Route: 065
  3. ZINC [Suspect]
     Indication: VITAMIN SUPPLEMENTATION
     Route: 065

REACTIONS (10)
  - ADVERSE REACTION [None]
  - BED REST [None]
  - DIZZINESS [None]
  - IMPAIRED DRIVING ABILITY [None]
  - MALAISE [None]
  - MEDICATION ERROR [None]
  - NERVOUSNESS [None]
  - PAIN IN EXTREMITY [None]
  - PALPITATIONS [None]
  - TACHYCARDIA [None]
